FAERS Safety Report 12616986 (Version 1)
Quarter: 2016Q3

REPORT INFORMATION
  Report Type: Report from Study
  Country: US (occurrence: US)
  Receive Date: 20160803
  Receipt Date: 20160803
  Transmission Date: 20161109
  Serious: Yes (Hospitalization, Other)
  Sender: FDA-Public Use
  Company Number: US-AMGEN-USASL2016098380

PATIENT
  Age: 59 Year
  Sex: Female

DRUGS (2)
  1. ENBREL [Suspect]
     Active Substance: ETANERCEPT
     Indication: RHEUMATOID ARTHRITIS
     Dosage: UNK UNK, QWK
     Route: 065
     Dates: start: 201101
  2. METHOTREXATE. [Concomitant]
     Active Substance: METHOTREXATE
     Dosage: 4 METHOTREXATE A WEEK

REACTIONS (9)
  - Cardiac failure congestive [Recovering/Resolving]
  - Malaise [Unknown]
  - Mobility decreased [Unknown]
  - Immune system disorder [Unknown]
  - Pain [Unknown]
  - Gait disturbance [Recovering/Resolving]
  - Condition aggravated [Unknown]
  - Pneumonia [Unknown]
  - Arthralgia [Unknown]
